FAERS Safety Report 24700257 (Version 1)
Quarter: 2024Q4

REPORT INFORMATION
  Report Type: Spontaneous
  Country: DE (occurrence: DE)
  Receive Date: 20241205
  Receipt Date: 20241205
  Transmission Date: 20250114
  Serious: Yes (Hospitalization)
  Sender: ABBVIE
  Company Number: DE-ABBVIE-6029442

PATIENT
  Age: 51 Year
  Sex: Female

DRUGS (4)
  1. SKYRIZI [Suspect]
     Active Substance: RISANKIZUMAB-RZAA
     Indication: Psoriasis
     Dosage: FREQUENCY: WEEK 4?150 MG
     Route: 058
     Dates: start: 2022, end: 202405
  2. SKYRIZI [Suspect]
     Active Substance: RISANKIZUMAB-RZAA
     Dosage: FREQUENCY: WEEK 0?150 MG
     Route: 058
     Dates: start: 202201, end: 202201
  3. RIBOCICLIB [Concomitant]
     Active Substance: RIBOCICLIB
     Indication: Neoplasm malignant
  4. XGEVA [Concomitant]
     Active Substance: DENOSUMAB
     Indication: Neoplasm malignant

REACTIONS (1)
  - Metastasis [Unknown]

NARRATIVE: CASE EVENT DATE: 20240430
